FAERS Safety Report 21446292 (Version 2)
Quarter: 2024Q3

REPORT INFORMATION
  Report Type: Report from Study
  Country: US (occurrence: US)
  Receive Date: 20221012
  Receipt Date: 20240925
  Transmission Date: 20241017
  Serious: Yes (Other)
  Sender: GLAXOSMITHKLINE
  Company Number: US-GLAXOSMITHKLINE-US2021AMR102521

PATIENT

DRUGS (5)
  1. NIRAPARIB [Suspect]
     Active Substance: NIRAPARIB
     Indication: Connective tissue neoplasm
     Dosage: 200 MG, QD
     Dates: start: 20200811
  2. NIRAPARIB [Suspect]
     Active Substance: NIRAPARIB
     Indication: Soft tissue neoplasm
     Dosage: 200 MG, QD
     Route: 048
     Dates: start: 20210501, end: 20211222
  3. NIRAPARIB [Suspect]
     Active Substance: NIRAPARIB
     Indication: Peripheral nervous system neoplasm
     Dosage: 200 MG, QD
     Route: 048
     Dates: start: 20220114
  4. NIRAPARIB [Suspect]
     Active Substance: NIRAPARIB
     Indication: Malignant peritoneal neoplasm
     Dosage: 200 MG, QD
     Dates: start: 20220131
  5. NIRAPARIB [Suspect]
     Active Substance: NIRAPARIB
     Dosage: 200 MG, QD

REACTIONS (8)
  - Recurrent cancer [Not Recovered/Not Resolved]
  - COVID-19 [Recovering/Resolving]
  - Fatigue [Not Recovered/Not Resolved]
  - Stent placement [Unknown]
  - Hepatic enzyme increased [Not Recovered/Not Resolved]
  - Decreased activity [Not Recovered/Not Resolved]
  - Product use in unapproved indication [Unknown]
  - Off label use [Unknown]

NARRATIVE: CASE EVENT DATE: 20210421
